FAERS Safety Report 23595403 (Version 3)
Quarter: 2024Q2

REPORT INFORMATION
  Report Type: Spontaneous
  Country: IT (occurrence: IT)
  Receive Date: 20240305
  Receipt Date: 20240402
  Transmission Date: 20240716
  Serious: Yes (Hospitalization, Other)
  Sender: FDA-Public Use
  Company Number: IT-Accord-410453

PATIENT
  Age: 12 Year
  Sex: Female
  Weight: 25 kg

DRUGS (3)
  1. METHOTREXATE [Suspect]
     Active Substance: METHOTREXATE
     Indication: Crohn^s disease
     Route: 058
     Dates: start: 201809, end: 201811
  2. ADALIMUMAB [Suspect]
     Active Substance: ADALIMUMAB\ISOPROPYL ALCOHOL
     Indication: Crohn^s disease
     Dates: start: 201809, end: 201811
  3. USTEKINUMAB [Suspect]
     Active Substance: USTEKINUMAB
     Indication: Crohn^s disease
     Dosage: 3 CONSECUTIVE WEEKLY
     Route: 058
     Dates: start: 201811, end: 2019

REACTIONS (9)
  - Poncet^s disease [Recovered/Resolved]
  - Off label use [Unknown]
  - Candida infection [Recovered/Resolved]
  - Acid fast bacilli infection [Recovered/Resolved]
  - Parainfluenzae virus infection [Recovered/Resolved]
  - Strongyloidiasis [Recovered/Resolved]
  - Mycobacterial infection [Recovered/Resolved]
  - Enterovirus infection [Recovered/Resolved]
  - Pulmonary tuberculosis [Recovered/Resolved]

NARRATIVE: CASE EVENT DATE: 20180101
